FAERS Safety Report 21995989 (Version 1)
Quarter: 2023Q1

REPORT INFORMATION
  Report Type: Spontaneous
  Country: None (occurrence: FR)
  Receive Date: 20230215
  Receipt Date: 20230215
  Transmission Date: 20230418
  Serious: Yes (Hospitalization, Other)
  Sender: FDA-Public Use
  Company Number: FR-Nova Laboratories Limited-2138001

PATIENT
  Age: 9 Year
  Sex: Female
  Weight: 28.5 kg

DRUGS (5)
  1. PURIXAN [Suspect]
     Active Substance: MERCAPTOPURINE
     Indication: Acute lymphocytic leukaemia
     Route: 048
     Dates: start: 202104, end: 20220829
  2. ATOVAQUONE [Suspect]
     Active Substance: ATOVAQUONE
     Route: 048
     Dates: start: 20210831, end: 20220829
  3. ATARAX [Suspect]
     Active Substance: HYDROXYZINE HYDROCHLORIDE
     Route: 048
  4. ACYCLOVIR [Suspect]
     Active Substance: ACYCLOVIR
     Route: 048
     Dates: start: 20220629, end: 20220829
  5. METHOTREXATE [Suspect]
     Active Substance: METHOTREXATE
     Route: 048
     Dates: start: 202104, end: 20220828

REACTIONS (3)
  - Nephrolithiasis [Not Recovered/Not Resolved]
  - Cholelithiasis [Not Recovered/Not Resolved]
  - Cholestasis [Recovered/Resolved]

NARRATIVE: CASE EVENT DATE: 20220801
